FAERS Safety Report 17348573 (Version 1)
Quarter: 2020Q1

REPORT INFORMATION
  Report Type: Spontaneous
  Country: US (occurrence: US)
  Receive Date: 20200129
  Receipt Date: 20200129
  Transmission Date: 20200409
  Serious: Yes (Other)
  Sender: FDA-Public Use
  Company Number: None

PATIENT
  Age: 69 Year
  Sex: Female
  Weight: 58.5 kg

DRUGS (14)
  1. CAPECITABINE. [Suspect]
     Active Substance: CAPECITABINE
     Indication: BREAST CANCER FEMALE
     Route: 048
     Dates: start: 20191112
  2. CENTRUM [Concomitant]
     Active Substance: VITAMINS
  3. ZOLOFT [Concomitant]
     Active Substance: SERTRALINE HYDROCHLORIDE
  4. BIOTIN [Concomitant]
     Active Substance: BIOTIN
  5. IBRANCE [Concomitant]
     Active Substance: PALBOCICLIB
  6. COZAAR [Concomitant]
     Active Substance: LOSARTAN POTASSIUM
  7. VITAMIN D [Concomitant]
     Active Substance: VITAMIN D NOS
  8. PERIDEX [Concomitant]
     Active Substance: CHLORHEXIDINE GLUCONATE
  9. ROSUVASTATIN. [Concomitant]
     Active Substance: ROSUVASTATIN
  10. EXEMASTANE [Concomitant]
     Active Substance: EXEMESTANE
  11. LOMOTIL [Concomitant]
     Active Substance: ATROPINE SULFATE\DIPHENOXYLATE HYDROCHLORIDE
  12. VITAMIN B12 [Concomitant]
     Active Substance: CYANOCOBALAMIN
  13. PEPCID [Concomitant]
     Active Substance: FAMOTIDINE
  14. XANAX [Concomitant]
     Active Substance: ALPRAZOLAM

REACTIONS (1)
  - Dizziness [None]

NARRATIVE: CASE EVENT DATE: 20200129
